FAERS Safety Report 15061296 (Version 1)
Quarter: 2018Q2

REPORT INFORMATION
  Report Type: Spontaneous
  Country: US (occurrence: US)
  Receive Date: 20180625
  Receipt Date: 20180625
  Transmission Date: 20180711
  Serious: No
  Sender: FDA-Public Use
  Company Number: US-ROCHE-2022975

PATIENT
  Sex: Male
  Weight: 77.63 kg

DRUGS (2)
  1. CELLCEPT [Suspect]
     Active Substance: MYCOPHENOLATE MOFETIL\MYCOPHENOLATE MOFETIL HYDROCHLORIDE
     Dosage: 2 TABLETS TWICE A DAY; TOTAL OF 2000MG DAILY ;ONGOING: UNKNOWN
     Route: 048
     Dates: start: 201707
  2. CELLCEPT [Suspect]
     Active Substance: MYCOPHENOLATE MOFETIL\MYCOPHENOLATE MOFETIL HYDROCHLORIDE
     Indication: UVEITIC GLAUCOMA
     Dosage: 2 TABLETS TWICE A DAY; TOTAL OF 2000MG DAILY ;ONGOING: NO
     Route: 048
     Dates: start: 2012, end: 2012

REACTIONS (3)
  - Intentional product use issue [Unknown]
  - Off label use [Unknown]
  - No adverse event [Unknown]
